FAERS Safety Report 21480793 (Version 1)
Quarter: 2022Q4

REPORT INFORMATION
  Report Type: Report from Study
  Country: CO (occurrence: CO)
  Receive Date: 20221019
  Receipt Date: 20221019
  Transmission Date: 20230113
  Serious: Yes (Hospitalization)
  Sender: FDA-Public Use
  Company Number: CO-FERRINGPH-2022FE05475

PATIENT

DRUGS (1)
  1. DEGARELIX [Suspect]
     Active Substance: DEGARELIX
     Indication: Prostate cancer
     Dosage: 240 MG ONCE/SINGLE (INITIAL)
     Route: 058
     Dates: start: 20220903

REACTIONS (6)
  - Somnolence [Recovering/Resolving]
  - Dizziness [Recovering/Resolving]
  - Gait disturbance [Recovering/Resolving]
  - Loss of consciousness [Recovering/Resolving]
  - Renal failure [Recovering/Resolving]
  - Cardiac failure [Recovering/Resolving]

NARRATIVE: CASE EVENT DATE: 20220903
